FAERS Safety Report 8869432 (Version 2)
Quarter: 2012Q4

REPORT INFORMATION
  Report Type: Report from Study
  Country: US (occurrence: US)
  Receive Date: 20121028
  Receipt Date: 20121101
  Transmission Date: 20130627
  Serious: Yes (Other)
  Sender: FDA-Public Use
  Company Number: US-TEVA-366603USA

PATIENT
  Age: 75 Year
  Sex: Female
  Weight: 108 kg

DRUGS (8)
  1. AZILECT [Suspect]
     Indication: PARKINSON^S DISEASE
     Dosage: 1 or 2mg vs. placebo
     Route: 048
     Dates: start: 20060817, end: 20070426
  2. AZILECT [Suspect]
     Dosage: 1 Milligram Daily;
     Route: 048
     Dates: start: 20100128
  3. ARTANE [Concomitant]
     Indication: PARKINSON^S DISEASE
     Dosage: 4 Milligram Daily;
     Route: 048
     Dates: start: 20110524, end: 20110530
  4. ARTANE [Concomitant]
     Dosage: 2 Milligram Daily;
     Route: 048
     Dates: start: 20110531, end: 20110606
  5. ARTANE [Concomitant]
     Dosage: 2 Milligram Daily;
     Route: 048
     Dates: start: 20110128, end: 20110202
  6. ARTANE [Concomitant]
     Dosage: 4 Milligram Daily;
     Route: 048
     Dates: start: 20110203, end: 20110209
  7. ARTANE [Concomitant]
     Dosage: 6 Milligram Daily;
     Route: 048
     Dates: start: 20110210, end: 20110523
  8. PRAMIPEXOLE [Concomitant]
     Indication: PARKINSON^S DISEASE
     Dosage: .75 Milligram Daily;
     Route: 048
     Dates: start: 20101021

REACTIONS (1)
  - Breast cancer [Not Recovered/Not Resolved]
